FAERS Safety Report 4851346-4 (Version None)
Quarter: 2005Q4

REPORT INFORMATION
  Report Type: 
  Country: None (occurrence: None)
  Receive Date: 20051212
  Receipt Date: 20050714
  Transmission Date: 20060501
  Serious: Yes (Other)
  Sender: FDA-Public Use
  Company Number: PHBS2005JP10287

PATIENT
  Age: 44 Year
  Sex: Male
  Weight: 53 kg

DRUGS (6)
  1. SANDIMMUNE [Suspect]
     Indication: RENAL TRANSPLANT
     Dosage: 175 MG/D
     Route: 048
     Dates: start: 19930714, end: 19960530
  2. SANDIMMUNE [Suspect]
     Dosage: 175 MG/D
     Route: 048
     Dates: start: 19960823, end: 20000831
  3. IMURAN [Concomitant]
     Indication: RENAL TRANSPLANT
     Dosage: 75 MG/D
     Route: 048
     Dates: start: 19930714
  4. BREDININ [Concomitant]
     Indication: RENAL TRANSPLANT
     Dosage: 5 MG/D
     Route: 048
  5. NEORAL [Suspect]
     Indication: RENAL TRANSPLANT
     Dosage: 175 MG/D
     Route: 048
     Dates: start: 19960531, end: 19960822
  6. NEORAL [Suspect]
     Dosage: 175 MG/D
     Route: 048
     Dates: start: 20000901

REACTIONS (4)
  - CEREBELLAR ATROPHY [None]
  - DYSARTHRIA [None]
  - GAIT DISTURBANCE [None]
  - MOTOR DYSFUNCTION [None]
